FAERS Safety Report 23453273 (Version 1)
Quarter: 2024Q1

REPORT INFORMATION
  Report Type: Spontaneous
  Country: BR (occurrence: BR)
  Receive Date: 20240129
  Receipt Date: 20240129
  Transmission Date: 20240409
  Serious: Yes (Other)
  Sender: FDA-Public Use
  Company Number: BR-002147023-PHHY2019BR225647

PATIENT
  Age: 67 Year
  Sex: Female

DRUGS (4)
  1. DIOVAN HCT [Suspect]
     Active Substance: HYDROCHLOROTHIAZIDE\VALSARTAN
     Indication: Product used for unknown indication
     Dosage: 1 DF, QD (IN THE MORNING)
     Route: 065
  2. DIOVAN HCT [Suspect]
     Active Substance: HYDROCHLOROTHIAZIDE\VALSARTAN
     Dosage: UNK (320/12.5 MG)
     Route: 065
  3. DIOVAN HCT [Suspect]
     Active Substance: HYDROCHLOROTHIAZIDE\VALSARTAN
     Dosage: UNK (160/25 MG)
     Route: 065
  4. DIOVAN HCT [Suspect]
     Active Substance: HYDROCHLOROTHIAZIDE\VALSARTAN
     Dosage: UNK (160/12.5 MG)
     Route: 065

REACTIONS (11)
  - Ischaemic stroke [Recovering/Resolving]
  - Cerebrovascular accident [Recovering/Resolving]
  - Choking [Recovering/Resolving]
  - Blood pressure increased [Unknown]
  - Blood pressure abnormal [Unknown]
  - Illness [Unknown]
  - Therapeutic product effect increased [Recovering/Resolving]
  - Diplopia [Recovering/Resolving]
  - Vision blurred [Recovering/Resolving]
  - Nervousness [Recovering/Resolving]
  - Renal disorder [Recovering/Resolving]

NARRATIVE: CASE EVENT DATE: 20190925
